FAERS Safety Report 14020131 (Version 2)
Quarter: 2017Q4

REPORT INFORMATION
  Report Type: Report from Study
  Country: None (occurrence: IE)
  Receive Date: 20170928
  Receipt Date: 20171019
  Transmission Date: 20180321
  Serious: Yes (Hospitalization)
  Sender: FDA-Public Use
  Company Number: IE-BIOGEN-2017BV000149

PATIENT
  Age: 1 Year
  Sex: Male
  Weight: 10.6 kg

DRUGS (2)
  1. ANTIHEMOPHILIC FACTOR (RECOMBINANT), FC FUSION PROTEIN [Suspect]
     Active Substance: (1-743)-(1638-2332)-BLOOD-COAGULATION FACTOR VIII (SYNTHETIC HUMAN) FUSION PROTEIN WITH IMMUNOGLOBULIN G1 (SYNTHETIC HUMAN FC DOMAIN FRAGMENT), (1444-6^),(1447-9^)-BIS(DISULFIDE) WITH IMMUNOGLOBULIN G1 (SYNTHETIC HUMAN FC DOMAIN FRAGMENT)
     Route: 065
     Dates: start: 20170622
  2. ANTIHEMOPHILIC FACTOR (RECOMBINANT), FC FUSION PROTEIN [Suspect]
     Active Substance: (1-743)-(1638-2332)-BLOOD-COAGULATION FACTOR VIII (SYNTHETIC HUMAN) FUSION PROTEIN WITH IMMUNOGLOBULIN G1 (SYNTHETIC HUMAN FC DOMAIN FRAGMENT), (1444-6^),(1447-9^)-BIS(DISULFIDE) WITH IMMUNOGLOBULIN G1 (SYNTHETIC HUMAN FC DOMAIN FRAGMENT)
     Indication: FACTOR VIII DEFICIENCY
     Dosage: SUBJECT IS ON ^ON-DEMAND^ TREATMENT
     Route: 042
     Dates: start: 20170525

REACTIONS (1)
  - Head injury [Recovered/Resolved]

NARRATIVE: CASE EVENT DATE: 20170622
